FAERS Safety Report 8976509 (Version 2)
Quarter: 2013Q1

REPORT INFORMATION
  Report Type: Report from Study
  Country: US (occurrence: US)
  Receive Date: 20121220
  Receipt Date: 20130223
  Transmission Date: 20140127
  Serious: Yes (Hospitalization)
  Sender: FDA-Public Use
  Company Number: US-US-EMD SERONO, INC.-7182619

PATIENT
  Sex: Female

DRUGS (3)
  1. REBIF [Suspect]
     Indication: PRODUCT USED FOR UNKNOWN INDICATION
     Route: 058
     Dates: start: 20110413
  2. REBIF [Suspect]
     Route: 058
     Dates: start: 20121220, end: 20130203
  3. BACLOFEN PUMP [Concomitant]
     Indication: PRODUCT USED FOR UNKNOWN INDICATION
     Dates: start: 2008

REACTIONS (4)
  - Endocarditis bacterial [Recovering/Resolving]
  - Cystitis bacterial [Unknown]
  - Central nervous system lesion [Unknown]
  - Fatigue [Unknown]
